FAERS Safety Report 7384124-5 (Version None)
Quarter: 2011Q1

REPORT INFORMATION
  Report Type: 
  Country: None (occurrence: None)
  Receive Date: 20110330
  Receipt Date: 20110323
  Transmission Date: 20110831
  Serious: Yes (Other)
  Sender: FDA-Public Use
  Company Number: A0919549A

PATIENT
  Age: 76 Year
  Sex: Male

DRUGS (9)
  1. LEVOTHYROXINE SODIUM [Concomitant]
  2. ADVAIR DISKUS 100/50 [Suspect]
     Indication: ASTHMA
     Dosage: 2PUFF PER DAY
     Route: 055
     Dates: start: 20080301
  3. ASPIRIN [Concomitant]
  4. SIMVASTATIN [Concomitant]
  5. BYSTOLIC [Concomitant]
  6. ALLOPURINOL [Concomitant]
  7. PACERONE [Concomitant]
  8. WARFARIN [Concomitant]
  9. METFORMIN [Concomitant]

REACTIONS (5)
  - DRY EYE [None]
  - CATARACT [None]
  - VISUAL ACUITY REDUCED [None]
  - NIGHT BLINDNESS [None]
  - VISION BLURRED [None]
